FAERS Safety Report 17646368 (Version 1)
Quarter: 2020Q2

REPORT INFORMATION
  Report Type: Spontaneous
  Country: CN (occurrence: CN)
  Receive Date: 20200408
  Receipt Date: 20200408
  Transmission Date: 20200713
  Serious: Yes (Hospitalization)
  Sender: FDA-Public Use
  Company Number: CN-ASTRAZENECA-2020SE46627

PATIENT
  Age: 71 Year
  Sex: Male
  Weight: 67 kg

DRUGS (10)
  1. ZOLPIDEM TARTRATE. [Interacting]
     Active Substance: ZOLPIDEM TARTRATE
     Route: 065
     Dates: start: 20180110
  2. ESTAZOLAM. [Interacting]
     Active Substance: ESTAZOLAM
     Route: 065
     Dates: start: 20180103
  3. QUETIAPINE. [Suspect]
     Active Substance: QUETIAPINE
     Indication: DEPRESSION
     Route: 048
     Dates: start: 20180130
  4. PAROXETINE. [Interacting]
     Active Substance: PAROXETINE
     Route: 065
     Dates: start: 20180103
  5. PAROXETINE. [Interacting]
     Active Substance: PAROXETINE
     Route: 065
     Dates: start: 20180130
  6. ZOLPIDEM TARTRATE. [Interacting]
     Active Substance: ZOLPIDEM TARTRATE
     Dosage: ONCE A DAY
     Route: 065
     Dates: start: 20171116
  7. MIRTAZAPINE. [Interacting]
     Active Substance: MIRTAZAPINE
     Route: 065
     Dates: start: 20180103
  8. DROPERIDOL. [Interacting]
     Active Substance: DROPERIDOL
     Route: 065
     Dates: start: 20180110
  9. MELITRACEN [Interacting]
     Active Substance: MELITRACEN
     Route: 065
     Dates: start: 20171116
  10. FLUPENTIXOL [Interacting]
     Active Substance: FLUPENTIXOL
     Route: 065
     Dates: start: 20171116

REACTIONS (7)
  - Prescribed overdose [Unknown]
  - Mental disorder [Unknown]
  - Neuroleptic malignant syndrome [Unknown]
  - Behaviour disorder [Unknown]
  - Potentiating drug interaction [Unknown]
  - Rhabdomyolysis [Unknown]
  - Off label use [Unknown]
